FAERS Safety Report 5842650-1 (Version None)
Quarter: 2008Q3

REPORT INFORMATION
  Report Type: 
  Country: None (occurrence: None)
  Receive Date: 20080808
  Receipt Date: 20080730
  Transmission Date: 20090109
  Serious: No
  Sender: FDA-Public Use
  Company Number: 20085441

PATIENT
  Age: 54 Year
  Sex: Male

DRUGS (1)
  1. LIORESAL [Suspect]
     Indication: MUSCLE SPASTICITY
     Dosage: MCG, DAILY, INTRATHECAL
     Route: 037

REACTIONS (8)
  - BALANCE DISORDER [None]
  - BURNING SENSATION [None]
  - DEVICE MALFUNCTION [None]
  - DIZZINESS [None]
  - FEELING ABNORMAL [None]
  - IMPLANT SITE PAIN [None]
  - IRRITABILITY [None]
  - SOMNOLENCE [None]
